FAERS Safety Report 7133432-1 (Version None)
Quarter: 2010Q4

REPORT INFORMATION
  Report Type: 
  Country: None (occurrence: None)
  Receive Date: 20101202
  Receipt Date: 20101125
  Transmission Date: 20110411
  Serious: Yes (Hospitalization)
  Sender: FDA-Public Use
  Company Number: PHHO2010KR16625

PATIENT
  Sex: Female
  Weight: 44 kg

DRUGS (3)
  1. AFINITOR [Suspect]
     Indication: GASTRIC CANCER
     Dosage: 7.5 MG, UNK
     Route: 048
     Dates: start: 20100526, end: 20101030
  2. CAPECITABINE [Suspect]
     Indication: GASTRIC CANCER
     Dosage: 800 MG/M^2
     Route: 048
     Dates: start: 20100526, end: 20101030
  3. OXALIPLATIN [Suspect]
     Indication: GASTRIC CANCER
     Dosage: 100 MG/M^2
     Route: 042
     Dates: start: 20100526, end: 20101026

REACTIONS (5)
  - ABDOMINAL PAIN [None]
  - ENTERITIS [None]
  - GASTROINTESTINAL OEDEMA [None]
  - ILEUS [None]
  - IMPAIRED GASTRIC EMPTYING [None]
